FAERS Safety Report 8332513-4 (Version None)
Quarter: 2012Q2

REPORT INFORMATION
  Report Type: 
  Country: None (occurrence: None)
  Receive Date: 20120503
  Receipt Date: 20120430
  Transmission Date: 20120825
  Serious: No
  Sender: FDA-Public Use
  Company Number: US-PFIZER INC-2012106107

PATIENT
  Sex: Female
  Weight: 72.562 kg

DRUGS (1)
  1. RAPAMUNE [Suspect]
     Indication: HEART TRANSPLANT
     Dosage: UNK, 3XDAY
     Dates: end: 20120401

REACTIONS (4)
  - ABDOMINAL PAIN UPPER [None]
  - ABDOMINAL DISTENSION [None]
  - BACK PAIN [None]
  - GASTRITIS [None]
